FAERS Safety Report 9061311 (Version 1)
Quarter: 2013Q1

REPORT INFORMATION
  Report Type: Spontaneous
  Country: US (occurrence: None)
  Receive Date: 20130208
  Receipt Date: 20130208
  Transmission Date: 20140127
  Serious: Yes (Death)
  Sender: FDA-Public Use
  Company Number: None

PATIENT
  Age: 88 Year
  Sex: Male

DRUGS (9)
  1. LETAIRIS [Suspect]
     Indication: INTERSTITIAL LUNG DISEASE
     Route: 048
     Dates: start: 20130123, end: 20130129
  2. FUROSEMIDE [Concomitant]
  3. PREDNISONE [Concomitant]
  4. LOSARTAN/HCTZ [Concomitant]
  5. METOPROLOL [Concomitant]
  6. SIMVASTATIN [Concomitant]
  7. ASA [Concomitant]
  8. NTG [Concomitant]
  9. KCI [Concomitant]

REACTIONS (7)
  - Asthenia [None]
  - Exercise tolerance decreased [None]
  - Fatigue [None]
  - Dyspnoea [None]
  - Oedema [None]
  - Anxiety [None]
  - Cor pulmonale [None]
